FAERS Safety Report 17632679 (Version 1)
Quarter: 2020Q2

REPORT INFORMATION
  Report Type: Other
  Country: IT (occurrence: IT)
  Receive Date: 20200406
  Receipt Date: 20200406
  Transmission Date: 20200713
  Serious: Yes (Other)
  Sender: FDA-Public Use
  Company Number: IT-VALIDUS PHARMACEUTICALS LLC-IT-2020VAL000255

PATIENT

DRUGS (2)
  1. LASIX [Suspect]
     Active Substance: FUROSEMIDE
     Indication: HYPERTENSION
     Dosage: UNK
     Route: 048
     Dates: start: 20191113, end: 20191113
  2. TRANQUIRIT [Suspect]
     Active Substance: DIAZEPAM
     Indication: ANXIETY
     Dosage: 8 GTT DROPS, TOTAL
     Route: 048
     Dates: start: 20191113, end: 20191113

REACTIONS (2)
  - Presyncope [Recovering/Resolving]
  - Bradycardia [Recovering/Resolving]

NARRATIVE: CASE EVENT DATE: 20191113
